FAERS Safety Report 22619425 (Version 1)
Quarter: 2023Q2

REPORT INFORMATION
  Report Type: Spontaneous
  Country: US (occurrence: US)
  Receive Date: 20230620
  Receipt Date: 20230620
  Transmission Date: 20230722
  Serious: Yes (Hospitalization, Other)
  Sender: FDA-Public Use
  Company Number: US-MLMSERVICE-20230601-4310901-1

PATIENT

DRUGS (3)
  1. EMTRICITABINE\TENOFOVIR [Suspect]
     Active Substance: EMTRICITABINE\TENOFOVIR
     Indication: Antiretroviral therapy
     Dosage: UNK UNK, QD (STANDARD DOSE)
     Route: 065
  2. COBICISTAT\DARUNAVIR ETHANOLATE [Suspect]
     Active Substance: COBICISTAT\DARUNAVIR ETHANOLATE
     Indication: Antiretroviral therapy
     Dosage: UNK UNK, QD
     Route: 065
  3. TECOVIRIMAT [Concomitant]
     Active Substance: TECOVIRIMAT
     Indication: Monkeypox
     Dosage: UNK
     Route: 048

REACTIONS (6)
  - Monkeypox [Recovering/Resolving]
  - Arthritis bacterial [Recovering/Resolving]
  - Infective tenosynovitis [Recovering/Resolving]
  - Disease progression [Recovering/Resolving]
  - Tachycardia [Recovering/Resolving]
  - Immune reconstitution inflammatory syndrome [Recovering/Resolving]
